FAERS Safety Report 19484727 (Version 1)
Quarter: 2021Q3

REPORT INFORMATION
  Report Type: Other
  Country: BR (occurrence: BR)
  Receive Date: 20210701
  Receipt Date: 20210701
  Transmission Date: 20211014
  Serious: Yes (Other)
  Sender: FDA-Public Use
  Company Number: BR-B.BRAUN MEDICAL INC.-2113400

PATIENT
  Age: 46 Year
  Sex: Female

DRUGS (1)
  1. CEFTRIAXONE FOR INJECTION AND DEXTROSE INJECTION 0264?3153?11 (NDA 050 [Suspect]
     Active Substance: CEFTRIAXONE SODIUM

REACTIONS (1)
  - Acute generalised exanthematous pustulosis [None]
